FAERS Safety Report 6838956-X (Version None)
Quarter: 2010Q3

REPORT INFORMATION
  Report Type: 
  Country: None (occurrence: None)
  Receive Date: 20100713
  Receipt Date: 20071107
  Transmission Date: 20110219
  Serious: No
  Sender: FDA-Public Use
  Company Number: US-PFIZER INC-2007047962

PATIENT
  Sex: Female
  Weight: 58.2 kg

DRUGS (4)
  1. CHANTIX [Suspect]
     Indication: SMOKING CESSATION THERAPY
     Dates: start: 20070601
  2. TOPROL-XL [Concomitant]
  3. TAMBOCOR [Concomitant]
  4. ACETYLSALICYLIC ACID [Concomitant]

REACTIONS (7)
  - DECREASED APPETITE [None]
  - DRY MOUTH [None]
  - DYSGEUSIA [None]
  - HYPERTENSION [None]
  - NAUSEA [None]
  - NIGHTMARE [None]
  - WEIGHT INCREASED [None]
